FAERS Safety Report 24041594 (Version 1)
Quarter: 2024Q3

REPORT INFORMATION
  Report Type: Spontaneous
  Country: US (occurrence: US)
  Receive Date: 20240702
  Receipt Date: 20240702
  Transmission Date: 20241017
  Serious: No
  Sender: SAREPTA THERAPEUTICS
  Company Number: US-SAREPTA THERAPEUTICS INC.-SRP2023-004069

PATIENT
  Sex: Male
  Weight: 15.42 kg

DRUGS (7)
  1. EXONDYS 51 [Suspect]
     Active Substance: ETEPLIRSEN
     Indication: Duchenne muscular dystrophy
     Dosage: 400 MILLIGRAM, WEEKLY
     Route: 042
     Dates: start: 20220503, end: 20231122
  2. ALBUTEROL SULFATE [Concomitant]
     Active Substance: ALBUTEROL SULFATE
     Indication: Respiratory tract infection
     Dosage: UNK, PRN, AE 108 (90 INHALA AS NEEDED 2 PUFFS Q4-6H)
     Dates: start: 20221113
  3. FLOVENT HFA [Concomitant]
     Active Substance: FLUTICASONE PROPIONATE
     Indication: Product used for unknown indication
     Dosage: 44 MICROGRAM, BID, EVERY MORNING 2 PUFFS
     Dates: start: 20221113
  4. FLONASE ALLERGY RELIEF [Concomitant]
     Active Substance: FLUTICASONE PROPIONATE
     Indication: Product used for unknown indication
     Dosage: 50 MICROGRAM, QD, 1 SPRAY EACH NOSTRIL
     Route: 045
     Dates: start: 20221113
  5. IBUPROFEN [Concomitant]
     Active Substance: IBUPROFEN
     Indication: Pain
     Dosage: 100 MILLIGRAM,/5ML, Q6H, PRN FOR PAIN
     Route: 048
     Dates: start: 20220603
  6. ZYRTEC [Concomitant]
     Active Substance: CETIRIZINE HYDROCHLORIDE
     Indication: Product used for unknown indication
     Dosage: 10 MILLIGRAM, QD, 2.5 MG
     Route: 048
     Dates: start: 20220603
  7. EMFLAZA [Concomitant]
     Active Substance: DEFLAZACORT
     Indication: Product used for unknown indication
     Dosage: 22.75 MILLIGRAM PER MILLILITRE, QD, 0.53 ML
     Route: 048
     Dates: start: 20220907

REACTIONS (1)
  - Therapy cessation [Unknown]
